FAERS Safety Report 8879716 (Version 1)
Quarter: 2012Q4

REPORT INFORMATION
  Report Type: Report from Study
  Country: GB (occurrence: GB)
  Receive Date: 20121101
  Receipt Date: 20121101
  Transmission Date: 20130627
  Serious: Yes (Death)
  Sender: FDA-Public Use
  Company Number: GB-AMGEN-GBRCT2012068765

PATIENT
  Age: 48 Year
  Sex: Female
  Weight: 115 kg

DRUGS (2)
  1. ETANERCEPT [Suspect]
     Indication: RHEUMATOID ARTHRITIS
     Dosage: 25 mg, 2x/week
     Dates: start: 20041214
  2. METHOTREXATE [Concomitant]
     Dosage: UNK
     Dates: start: 20051021

REACTIONS (2)
  - Metastatic neoplasm [Fatal]
  - Malignant neoplasm of unknown primary site [Fatal]
